FAERS Safety Report 6925556-6 (Version None)
Quarter: 2010Q3

REPORT INFORMATION
  Report Type: 
  Country: None (occurrence: None)
  Receive Date: 20100816
  Receipt Date: 20100804
  Transmission Date: 20110219
  Serious: Yes (Hospitalization)
  Sender: FDA-Public Use
  Company Number: US-ROCHE-720560

PATIENT
  Sex: Male
  Weight: 42.6 kg

DRUGS (11)
  1. BONIVA [Suspect]
     Indication: PRODUCT USED FOR UNKNOWN INDICATION
     Route: 048
  2. CLARITIN [Concomitant]
  3. COENZYME Q10 [Concomitant]
     Dosage: DRUG REPORTED AS: CO-ENZYME 10
  4. PEPCID [Concomitant]
  5. FRAGMIN [Concomitant]
  6. LANOXIN [Concomitant]
  7. LISINOPRIL [Concomitant]
  8. FLAGYL [Concomitant]
  9. VANCOMYCIN [Concomitant]
  10. MYCAMINE [Concomitant]
  11. OSCAL [Concomitant]

REACTIONS (1)
  - ACUTE RESPIRATORY FAILURE [None]
